FAERS Safety Report 26134203 (Version 1)
Quarter: 2025Q4

REPORT INFORMATION
  Report Type: Spontaneous
  Country: SG (occurrence: SG)
  Receive Date: 20251209
  Receipt Date: 20251209
  Transmission Date: 20260117
  Serious: Yes (Life-Threatening, Hospitalization, Disabling)
  Sender: MACLEODS
  Company Number: SG-MLMSERVICE-20251121-PI721807-00033-1

PATIENT

DRUGS (2)
  1. CLOPIDOGREL [Suspect]
     Active Substance: CLOPIDOGREL BISULFATE
     Indication: Antiplatelet therapy
     Route: 065
  2. ASPIRIN [Suspect]
     Active Substance: ASPIRIN
     Indication: Antiplatelet therapy
     Route: 065

REACTIONS (6)
  - Spinal cord oedema [Unknown]
  - Spinal shock [Unknown]
  - Spinal cord compression [Unknown]
  - Melaena [Unknown]
  - Spinal epidural haematoma [Not Recovered/Not Resolved]
  - Hypotension [Recovering/Resolving]
